FAERS Safety Report 4264591-6 (Version None)
Quarter: 2004Q1

REPORT INFORMATION
  Report Type: 
  Country: None (occurrence: None)
  Receive Date: 20040102
  Receipt Date: 20031215
  Transmission Date: 20041129
  Serious: Yes (Hospitalization)
  Sender: FDA-Public Use
  Company Number: CEL-2003-03447-ROC

PATIENT
  Sex: Male

DRUGS (1)
  1. METHYLPHENIDATE - SLOW RELEASE (METHYLPHENIDATE HYDROCHLORIDE) [Suspect]

REACTIONS (1)
  - STEVENS-JOHNSON SYNDROME [None]
